FAERS Safety Report 5500626-8 (Version None)
Quarter: 2007Q4

REPORT INFORMATION
  Report Type: 
  Country: None (occurrence: None)
  Receive Date: 20071018
  Receipt Date: 20070514
  Transmission Date: 20080405
  Serious: Yes (Other)
  Sender: FDA-Public Use
  Company Number: 2007041096

PATIENT
  Sex: Female

DRUGS (1)
  1. NEURONTIN [Suspect]
     Dates: start: 19990101

REACTIONS (5)
  - ANXIETY [None]
  - DEPRESSION [None]
  - HALLUCINATION [None]
  - MANIA [None]
  - PARANOIA [None]
